FAERS Safety Report 15935111 (Version 1)
Quarter: 2019Q1

REPORT INFORMATION
  Report Type: Spontaneous
  Country: DE (occurrence: DE)
  Receive Date: 20190207
  Receipt Date: 20190207
  Transmission Date: 20190417
  Serious: Yes (Hospitalization)
  Sender: FDA-Public Use
  Company Number: DE-ASTRAZENECA-2019SE19605

PATIENT
  Age: 15 Year
  Sex: Female
  Weight: 47 kg

DRUGS (3)
  1. METHYLPHENIDATE. [Concomitant]
     Active Substance: METHYLPHENIDATE
  2. VOMEX A [Suspect]
     Active Substance: DIMENHYDRINATE
     Indication: SUICIDAL IDEATION
     Dosage: 500.0MG UNKNOWN
     Route: 048
     Dates: start: 20180906, end: 20180906
  3. QUETIAPINE. [Suspect]
     Active Substance: QUETIAPINE
     Indication: SUICIDAL IDEATION
     Dosage: 400.0MG UNKNOWN
     Route: 048
     Dates: start: 20180906, end: 20180906

REACTIONS (1)
  - Intentional overdose [Recovered/Resolved]

NARRATIVE: CASE EVENT DATE: 20180906
